FAERS Safety Report 9782181 (Version 2)
Quarter: 2014Q1

REPORT INFORMATION
  Report Type: Spontaneous
  Country: NL (occurrence: NL)
  Receive Date: 20131226
  Receipt Date: 20140123
  Transmission Date: 20141002
  Serious: Yes (Hospitalization, Other)
  Sender: FDA-Public Use
  Company Number: NL-AMGEN-NLDSP2013090111

PATIENT
  Age: 64 Year
  Sex: Male

DRUGS (8)
  1. XGEVA [Suspect]
     Indication: PRODUCT USED FOR UNKNOWN INDICATION
     Dosage: 120 MG, Q4WK
     Route: 058
     Dates: start: 20130312
  2. XGEVA [Suspect]
     Route: 058
  3. OXYCODONE HCL [Concomitant]
     Dosage: 10 MG, 4 DD
  4. AMLODIPINE ACCORD [Concomitant]
     Dosage: 5 MG, 1 DD 1
  5. RAMIPRIL/HYDROCHLOORTHIAZIDE [Concomitant]
     Dosage: 5/25 MG, 1DD 1/2
  6. PREDNISOLONE [Concomitant]
     Dosage: 5 MG, 1 DD2
  7. OMEPRAZOLE [Concomitant]
     Dosage: 20 MG, 2 DD
  8. AUGMENTIN [Concomitant]
     Dosage: 500/125, 3DD 1

REACTIONS (3)
  - Pain in jaw [Unknown]
  - Local swelling [Unknown]
  - Bone fistula [Unknown]
